FAERS Safety Report 18409983 (Version 8)
Quarter: 2021Q3

REPORT INFORMATION
  Report Type: Spontaneous
  Country: US (occurrence: US)
  Receive Date: 20201021
  Receipt Date: 20210716
  Transmission Date: 20211014
  Serious: No
  Sender: FDA-Public Use
  Company Number: US-PFIZER INC-2020400579

PATIENT
  Age: 12 Year
  Sex: Male
  Weight: 36.29 kg

DRUGS (3)
  1. GENOTROPIN [Suspect]
     Active Substance: SOMATROPIN
     Indication: GROWTH HORMONE DEFICIENCY
     Dosage: 1 MG, DAILY
     Dates: start: 2019
  2. GENOTROPIN [Suspect]
     Active Substance: SOMATROPIN
     Dosage: DAILY (1.6 UNKNOWN UNIT)
     Dates: start: 20201002
  3. GENOTROPIN [Suspect]
     Active Substance: SOMATROPIN
     Dosage: DAILY (1.4 UNKNOWN UNIT)

REACTIONS (3)
  - Device use error [Unknown]
  - Drug dose omission by device [Unknown]
  - Device mechanical issue [Unknown]
